FAERS Safety Report 5837990-6 (Version None)
Quarter: 2008Q3

REPORT INFORMATION
  Report Type: 
  Country: None (occurrence: None)
  Receive Date: 20080808
  Receipt Date: 20080128
  Transmission Date: 20090109
  Serious: No
  Sender: FDA-Public Use
  Company Number: A0705556A

PATIENT
  Age: 55 Year
  Sex: Male

DRUGS (6)
  1. PAXIL [Suspect]
     Indication: DEPRESSION
     Dosage: 40MG PER DAY
     Route: 048
     Dates: start: 20080122
  2. SIMVASTATIN [Concomitant]
  3. NAPROXEN [Concomitant]
  4. VERAPAMIL [Concomitant]
  5. ASPIRIN [Concomitant]
  6. VIAGRA [Concomitant]

REACTIONS (2)
  - DIARRHOEA [None]
  - SEXUAL DYSFUNCTION [None]
